FAERS Safety Report 7446997-7 (Version None)
Quarter: 2011Q2

REPORT INFORMATION
  Report Type: 
  Country: None (occurrence: None)
  Receive Date: 20110429
  Receipt Date: 20110420
  Transmission Date: 20111010
  Serious: Yes (Hospitalization)
  Sender: FDA-Public Use
  Company Number: US-US-EMD SERONO, INC.-7004743

PATIENT
  Sex: Female

DRUGS (3)
  1. AMBROTOSE [Concomitant]
     Indication: SECONDARY PROGRESSIVE MULTIPLE SCLEROSIS
  2. REBIF [Suspect]
     Indication: SECONDARY PROGRESSIVE MULTIPLE SCLEROSIS
     Route: 058
     Dates: start: 20021021
  3. REBIF [Suspect]
     Route: 058
     Dates: start: 20110101

REACTIONS (3)
  - INJECTION SITE PAIN [None]
  - MUSCLE ATROPHY [None]
  - CONGENITAL ARTERIAL MALFORMATION [None]
